FAERS Safety Report 9325458 (Version 1)
Quarter: 2013Q2

REPORT INFORMATION
  Report Type: Spontaneous
  Country: IN (occurrence: None)
  Receive Date: 20130531
  Receipt Date: 20130531
  Transmission Date: 20140414
  Serious: Yes (Disabling)
  Sender: FDA-Public Use
  Company Number: None

PATIENT
  Age: 55 Year
  Sex: Male
  Weight: 80 kg

DRUGS (1)
  1. LUCENTIS [Suspect]
     Indication: MACULAR OEDEMA
     Dates: start: 20110604, end: 20110704

REACTIONS (3)
  - Endophthalmitis [None]
  - Atrophy of globe [None]
  - Blindness [None]
